FAERS Safety Report 8538949-0 (Version None)
Quarter: 2012Q3

REPORT INFORMATION
  Report Type: 
  Country: None (occurrence: None)
  Receive Date: 20120726
  Receipt Date: 20120720
  Transmission Date: 20120928
  Serious: Yes (Life-Threatening, Hospitalization, Other)
  Sender: FDA-Public Use
  Company Number: PHHY2011CA18059

PATIENT
  Sex: Male

DRUGS (12)
  1. BISOPROLOL FUMARATE [Concomitant]
     Dosage: 5 MG, UNK
  2. AVODART [Concomitant]
     Dosage: 0.5 MG, UNK
  3. ZOLEDRONOC ACID [Suspect]
     Indication: OSTEOPOROSIS
     Route: 042
     Dates: start: 20100322
  4. ANTICOAGULANTS [Concomitant]
     Dosage: UNK UKN, UNK
  5. IMOVANE [Concomitant]
     Dosage: 7.5 MG, UNK
  6. CALCIUM [Concomitant]
     Dosage: 500 MG, UNK
  7. SYNTHROID [Concomitant]
     Dosage: 0.05 MG, UNK
  8. ZOLEDRONOC ACID [Suspect]
     Route: 042
     Dates: start: 20110524
  9. ATORVASTATIN [Concomitant]
     Dosage: 40 MG, UNK
  10. ZOLEDRONOC ACID [Suspect]
     Dosage: 5 MG, UNK
     Route: 042
     Dates: start: 20120530
  11. COUMADIN [Concomitant]
     Dosage: UNK UKN, UNK
     Dates: start: 20020101
  12. EURO-D [Concomitant]
     Dosage: 10000 U, UNK

REACTIONS (8)
  - INTESTINAL HAEMORRHAGE [None]
  - BLOOD DISORDER [None]
  - FAECES DISCOLOURED [None]
  - CARPAL TUNNEL SYNDROME [None]
  - NASAL CONGESTION [None]
  - HAEMATOCHEZIA [None]
  - RENAL IMPAIRMENT [None]
  - HAEMORRHAGE [None]
